FAERS Safety Report 8922287 (Version 1)
Quarter: 2012Q4

REPORT INFORMATION
  Report Type: 
  Country: US (occurrence: US)
  Receive Date: 20121126
  Receipt Date: 20121126
  Transmission Date: 20130627
  Serious: Yes (Other)
  Sender: FDA-Public Use
  Company Number: US-BRISTOL-MYERS SQUIBB COMPANY-17137902

PATIENT
  Age: 83 Year

DRUGS (1)
  1. HYDROXYUREA [Suspect]
     Dosage: 1df:500mg cap 1 standered dose of 100

REACTIONS (1)
  - Rib fracture [Unknown]
